FAERS Safety Report 7897931-7 (Version None)
Quarter: 2011Q4

REPORT INFORMATION
  Report Type: 
  Country: None (occurrence: None)
  Receive Date: 20111103
  Receipt Date: 20111021
  Transmission Date: 20120403
  Serious: Yes (Hospitalization)
  Sender: FDA-Public Use
  Company Number: 1000024861

PATIENT
  Age: 82 Year
  Sex: Male

DRUGS (6)
  1. ROFLUMILAST (ROFLUMILAST) (500 MICROGRAM, TABLETS) [Suspect]
     Indication: CHRONIC OBSTRUCTIVE PULMONARY DISEASE
     Dosage: ORAL
     Route: 048
     Dates: start: 20110306, end: 20110613
  2. OXYGEN (OXYGEN) (OXYGEN) [Concomitant]
  3. SEGURIL (FUROSEMIDE)(FUROSEMIDE) [Concomitant]
  4. GABAPENTIN [Concomitant]
  5. SYMBICORT (BUDESONIDE, FORMOTEROL FUMARATE)(BUDESONIDE, FORMOTEROL FUM [Concomitant]
  6. SINTROM (ACENOCOUMAROL)(ACENOOOUMAROL) [Concomitant]

REACTIONS (5)
  - DEPRESSION [None]
  - CACHEXIA [None]
  - HAEMOGLOBIN DECREASED [None]
  - WEIGHT DECREASED [None]
  - HAEMATOCRIT DECREASED [None]
